FAERS Safety Report 9900148 (Version 1)
Quarter: 2014Q1

REPORT INFORMATION
  Report Type: Report from Study
  Country: US (occurrence: US)
  Receive Date: 20140214
  Receipt Date: 20140214
  Transmission Date: 20141002
  Serious: Yes (Other)
  Sender: FDA-Public Use
  Company Number: US-TAKEDA-2014TUS000969

PATIENT
  Age: 65 Year
  Sex: Male
  Weight: 95.7 kg

DRUGS (16)
  1. BLINDED ALLOPURINOL [Suspect]
     Indication: HYPERURICAEMIA
     Dosage: UNK, QD
     Route: 048
     Dates: start: 20120214
  2. BLINDED FEBUXOSTAT [Suspect]
     Indication: HYPERURICAEMIA
     Dosage: UNK, QD
     Route: 048
     Dates: start: 20120214
  3. ATENOLOL [Concomitant]
     Indication: HYPERTENSION
     Dosage: 25 MG, 1 QD
     Route: 048
     Dates: start: 20101223
  4. AMBIEN [Concomitant]
     Indication: INSOMNIA
     Dosage: 10 MG, 1 QHS
     Route: 048
     Dates: start: 20101223
  5. VALTREX [Concomitant]
     Indication: HERPES ZOSTER
     Dosage: 500 MG, QD
     Route: 048
     Dates: start: 20120106
  6. TRIAMTERENE/HCTZ [Concomitant]
     Indication: HYPERTENSION
     Dosage: 5-25 MG, 1 QD
     Route: 048
     Dates: start: 20101223
  7. LEXAPRO [Concomitant]
     Indication: ANXIETY
     Dosage: 20 MG, 1 QD
     Route: 048
     Dates: start: 20110422
  8. KLOR-CON M10 [Concomitant]
     Indication: HYPOKALAEMIA
     Dosage: 10 MEQ, 1 QD
     Route: 048
     Dates: start: 20101223
  9. GLIMEPIRIDE [Concomitant]
     Indication: DIABETES MELLITUS
     Dosage: 1 MG, QD
     Route: 048
     Dates: start: 20110422
  10. ASPIRIN [Concomitant]
     Indication: HYPERTENSION
     Dosage: 81 MG, QD
     Route: 048
     Dates: start: 20101223
  11. HYDROCODONE-ACETAMINOPHEN [Concomitant]
     Indication: ARTHRITIS
     Dosage: 5-500 MG, QD
     Route: 048
     Dates: start: 20121109
  12. HYDROCODONE-ACETAMINOPHEN [Concomitant]
     Indication: PAIN
  13. VITAMIN D [Concomitant]
     Indication: VITAMIN D DEFICIENCY
     Dosage: 2000 UNITS, QD
     Route: 048
     Dates: start: 20101223
  14. LIPITOR [Concomitant]
     Indication: HYPERCHOLESTEROLAEMIA
     Dosage: 20 MG, QD
     Route: 048
     Dates: start: 20130724
  15. CIPRO [Concomitant]
     Indication: HAEMATURIA
     Dosage: 500 MG, BID
     Route: 048
     Dates: start: 20130830, end: 20130906
  16. INFLUENZA VACCINE [Suspect]
     Indication: PROPHYLAXIS
     Dosage: 0.5 MG, ONCE
     Route: 030
     Dates: start: 20131021, end: 20131021

REACTIONS (1)
  - Bladder cancer [Recovered/Resolved]
